FAERS Safety Report 20604931 (Version 36)
Quarter: 2024Q3

REPORT INFORMATION
  Report Type: Spontaneous
  Country: PT (occurrence: PT)
  Receive Date: 20220317
  Receipt Date: 20240911
  Transmission Date: 20241016
  Serious: Yes (Death, Other)
  Sender: NODEN PHARMA
  Company Number: MASTER-EVHUMAN-20220303150624_WJPWKP

PATIENT

DRUGS (128)
  1. ALISKIREN [Suspect]
     Active Substance: ALISKIREN
     Indication: Product used for unknown indication
     Dosage: NOT PROVIDED
  2. EZETIMIBE [Suspect]
     Active Substance: EZETIMIBE
     Indication: Product used for unknown indication
     Route: 048
  3. EZETIMIBE [Suspect]
     Active Substance: EZETIMIBE
     Dosage: NOT PROVIDED
  4. HYDROCHLOROTHIAZIDE [Suspect]
     Active Substance: HYDROCHLOROTHIAZIDE
     Indication: Product used for unknown indication
     Dosage: NOT PROVIDED
  5. HYDROCHLOROTHIAZIDE [Suspect]
     Active Substance: HYDROCHLOROTHIAZIDE
     Dosage: NOT PROVIDED
  6. DUTASTERIDE [Suspect]
     Active Substance: DUTASTERIDE
     Indication: Product used for unknown indication
  7. DUTASTERIDE [Suspect]
     Active Substance: DUTASTERIDE
  8. ATORVASTATIN CALCIUM [Suspect]
     Active Substance: ATORVASTATIN CALCIUM
     Indication: Product used for unknown indication
  9. ATORVASTATIN CALCIUM [Suspect]
     Active Substance: ATORVASTATIN CALCIUM
  10. ETANERCEPT [Suspect]
     Active Substance: ETANERCEPT
     Indication: Blood pressure abnormal
     Dosage: DOSAGE 1: UNIT-NOT AVAILABLE (UNKNOWN)
  11. FLUVASTATIN SODIUM [Suspect]
     Active Substance: FLUVASTATIN SODIUM
     Indication: Product used for unknown indication
     Dosage: NOT PROVIDED
  12. POTASSIUM IODIDE [Suspect]
     Active Substance: POTASSIUM IODIDE
     Indication: Product used for unknown indication
     Dosage: NOT PROVIDED
  13. PROPRANOLOL [Suspect]
     Active Substance: PROPRANOLOL HYDROCHLORIDE
     Indication: Product used for unknown indication
     Dosage: NOT PROVIDED
  14. ACETAMINOPHEN [Suspect]
     Active Substance: ACETAMINOPHEN
     Indication: Product used for unknown indication
     Dosage: NOT PROVIDED
  15. ACETAMINOPHEN [Suspect]
     Active Substance: ACETAMINOPHEN
     Dosage: NOT PROVIDED
     Route: 048
  16. EXEMESTANE [Suspect]
     Active Substance: EXEMESTANE
     Indication: Product used for unknown indication
  17. DOMPERIDONE\DOMPERIDONE MALEATE [Suspect]
     Active Substance: DOMPERIDONE\DOMPERIDONE MALEATE
     Indication: Product used for unknown indication
     Dosage: NOT PROVIDED
  18. CILAZAPRIL ANHYDROUS [Suspect]
     Active Substance: CILAZAPRIL ANHYDROUS
     Indication: Product used for unknown indication
     Dosage: NOT PROVIDED
  19. GLUCOSAMINE SULFATE [Suspect]
     Active Substance: GLUCOSAMINE SULFATE
     Indication: Product used for unknown indication
  20. NORFLOXACIN [Suspect]
     Active Substance: NORFLOXACIN
     Indication: Product used for unknown indication
  21. NORFLOXACIN [Suspect]
     Active Substance: NORFLOXACIN
  22. INDOMETHACIN SODIUM [Suspect]
     Active Substance: INDOMETHACIN SODIUM
     Indication: Product used for unknown indication
  23. INDOMETHACIN SODIUM [Suspect]
     Active Substance: INDOMETHACIN SODIUM
     Dosage: NOT PROVIDED
     Route: 005
  24. PREGABALIN [Suspect]
     Active Substance: PREGABALIN
     Indication: Product used for unknown indication
  25. PREGABALIN [Suspect]
     Active Substance: PREGABALIN
  26. PREGABALIN [Suspect]
     Active Substance: PREGABALIN
  27. IMATINIB [Suspect]
     Active Substance: IMATINIB
     Indication: Product used for unknown indication
     Dosage: NOT PROVIDED
  28. PITAVASTATIN [Suspect]
     Active Substance: PITAVASTATIN
     Indication: Product used for unknown indication
     Route: 048
  29. SIMVASTATIN [Suspect]
     Active Substance: SIMVASTATIN
     Indication: Product used for unknown indication
     Route: 048
  30. SIMVASTATIN [Suspect]
     Active Substance: SIMVASTATIN
     Dosage: NOT PROVIDED
  31. SERTRALINE HYDROCHLORIDE [Suspect]
     Active Substance: SERTRALINE HYDROCHLORIDE
     Indication: Product used for unknown indication
     Dosage: NOT PROVIDED
  32. SERTRALINE HYDROCHLORIDE [Suspect]
     Active Substance: SERTRALINE HYDROCHLORIDE
     Dosage: NOT PROVIDED
  33. SERTRALINE HYDROCHLORIDE [Suspect]
     Active Substance: SERTRALINE HYDROCHLORIDE
     Dosage: NOT PROVIDED
  34. LEVOCETIRIZINE DIHYDROCHLORIDE [Suspect]
     Active Substance: LEVOCETIRIZINE DIHYDROCHLORIDE
     Indication: Product used for unknown indication
  35. ACECLOFENAC [Suspect]
     Active Substance: ACECLOFENAC
     Indication: Product used for unknown indication
  36. AGOMELATINE [Suspect]
     Active Substance: AGOMELATINE
     Indication: Product used for unknown indication
     Dosage: NOT PROVIDED
  37. RIBAVIRIN [Suspect]
     Active Substance: RIBAVIRIN
     Indication: Product used for unknown indication
  38. RIBAVIRIN [Suspect]
     Active Substance: RIBAVIRIN
     Route: 048
  39. RIBAVIRIN [Suspect]
     Active Substance: RIBAVIRIN
  40. ZOLEDRONIC ACID [Suspect]
     Active Substance: ZOLEDRONIC ACID
     Indication: Product used for unknown indication
     Dosage: NOT PROVIDED
  41. LETROZOLE [Suspect]
     Active Substance: LETROZOLE
     Indication: Product used for unknown indication
     Dosage: NOT PROVIDED
  42. LETROZOLE [Suspect]
     Active Substance: LETROZOLE
     Dosage: NOT PROVIDED
  43. LETROZOLE [Suspect]
     Active Substance: LETROZOLE
     Dosage: NOT PROVIDED
  44. BRINZOLAMIDE [Suspect]
     Active Substance: BRINZOLAMIDE
     Indication: Product used for unknown indication
  45. BRINZOLAMIDE [Suspect]
     Active Substance: BRINZOLAMIDE
  46. ASPIRIN\PENTAZOCINE [Suspect]
     Active Substance: ASPIRIN\PENTAZOCINE
     Indication: Product used for unknown indication
     Route: 048
  47. ASPIRIN\PENTAZOCINE [Suspect]
     Active Substance: ASPIRIN\PENTAZOCINE
  48. INDOMETHACIN [Suspect]
     Active Substance: INDOMETHACIN
     Indication: Product used for unknown indication
  49. INDOMETHACIN [Suspect]
     Active Substance: INDOMETHACIN
  50. INDOMETHACIN [Suspect]
     Active Substance: INDOMETHACIN
  51. TRAMADOL HYDROCHLORIDE [Suspect]
     Active Substance: TRAMADOL HYDROCHLORIDE
     Indication: Product used for unknown indication
     Dosage: NOT PROVIDED
     Route: 062
  52. TRAMADOL HYDROCHLORIDE [Suspect]
     Active Substance: TRAMADOL HYDROCHLORIDE
     Dosage: NOT PROVIDED
  53. CHOLECALCIFEROL [Suspect]
     Active Substance: CHOLECALCIFEROL
     Indication: Product used for unknown indication
     Dosage: 50 MILLIGRAM
  54. CHOLECALCIFEROL [Suspect]
     Active Substance: CHOLECALCIFEROL
     Dosage: 22400 IU
  55. SODIUM PICOSULFATE [Suspect]
     Active Substance: SODIUM PICOSULFATE
     Indication: Product used for unknown indication
     Dosage: 35 GRAM
     Route: 062
  56. SODIUM PICOSULFATE [Suspect]
     Active Substance: SODIUM PICOSULFATE
     Dosage: 35 GRAM
  57. ESCITALOPRAM OXALATE [Suspect]
     Active Substance: ESCITALOPRAM OXALATE
     Indication: Product used for unknown indication
     Route: 048
  58. IMATINIB [Suspect]
     Active Substance: IMATINIB
     Indication: Product used for unknown indication
     Dosage: NOT PROVIDED
  59. HYDROMORPHONE HYDROCHLORIDE [Suspect]
     Active Substance: HYDROMORPHONE HYDROCHLORIDE
     Indication: Product used for unknown indication
     Dosage: NOT PROVIDED
     Route: 048
  60. PRAVASTATIN SODIUM [Suspect]
     Active Substance: PRAVASTATIN SODIUM
     Indication: Product used for unknown indication
     Dosage: NOT PROVIDED
  61. PRAVASTATIN SODIUM [Suspect]
     Active Substance: PRAVASTATIN SODIUM
     Dosage: NOT PROVIDED
  62. ALENDRONATE SODIUM [Suspect]
     Active Substance: ALENDRONATE SODIUM
     Indication: Product used for unknown indication
     Route: 048
  63. ALENDRONATE SODIUM [Suspect]
     Active Substance: ALENDRONATE SODIUM
     Dosage: NOT PROVIDED
  64. FLUOXETINE HYDROCHLORIDE [Suspect]
     Active Substance: FLUOXETINE HYDROCHLORIDE
     Indication: Product used for unknown indication
     Dosage: NOT PROVIDED
  65. TELMISARTAN [Suspect]
     Active Substance: TELMISARTAN
     Indication: Product used for unknown indication
     Dosage: NOT PROVIDED
  66. VORTIOXETINE [Suspect]
     Active Substance: VORTIOXETINE HYDROBROMIDE
     Indication: Product used for unknown indication
     Dosage: NOT PROVIDED
  67. LEDIPASVIR [Suspect]
     Active Substance: LEDIPASVIR
     Indication: Product used for unknown indication
     Dosage: NOT PROVIDED
  68. VENLAFAXINE HYDROCHLORIDE [Suspect]
     Active Substance: VENLAFAXINE HYDROCHLORIDE
     Indication: Product used for unknown indication
  69. PENTOXIFYLLINE [Suspect]
     Active Substance: PENTOXIFYLLINE
     Indication: Product used for unknown indication
  70. PENTOXIFYLLINE [Suspect]
     Active Substance: PENTOXIFYLLINE
  71. FENOFIBRATE [Suspect]
     Active Substance: FENOFIBRATE
     Indication: Product used for unknown indication
  72. FENOFIBRATE [Suspect]
     Active Substance: FENOFIBRATE
     Dosage: NOT PROVIDED
     Route: 048
  73. VERAPAMIL HYDROCHLORIDE [Suspect]
     Active Substance: VERAPAMIL HYDROCHLORIDE
     Indication: Product used for unknown indication
  74. TAMSULOSIN HYDROCHLORIDE [Suspect]
     Active Substance: TAMSULOSIN HYDROCHLORIDE
     Indication: Product used for unknown indication
     Dosage: NOT PROVIDED
     Route: 062
  75. ENOXAPARIN SODIUM [Suspect]
     Active Substance: ENOXAPARIN SODIUM
     Indication: Product used for unknown indication
     Dosage: NOT PROVIDED
  76. ENOXAPARIN SODIUM [Suspect]
     Active Substance: ENOXAPARIN SODIUM
     Dosage: NOT PROVIDED
  77. NIMESULIDE [Suspect]
     Active Substance: NIMESULIDE
     Indication: Product used for unknown indication
     Dosage: NOT PROVIDED
  78. MIRTAZAPINE [Suspect]
     Active Substance: MIRTAZAPINE
     Indication: Product used for unknown indication
     Route: 048
  79. MIRTAZAPINE [Suspect]
     Active Substance: MIRTAZAPINE
     Dosage: NOT PROVIDED
  80. BISOPROLOL FUMARATE [Suspect]
     Active Substance: BISOPROLOL FUMARATE
     Indication: Product used for unknown indication
  81. HUMAN IMMUNOGLOBULIN G [Suspect]
     Active Substance: HUMAN IMMUNOGLOBULIN G
     Indication: Product used for unknown indication
     Dosage: 50 MILLIGRAM PER CUBIC METRE
  82. CELECOXIB [Suspect]
     Active Substance: CELECOXIB
     Indication: Product used for unknown indication
  83. CELECOXIB [Suspect]
     Active Substance: CELECOXIB
  84. CELECOXIB [Suspect]
     Active Substance: CELECOXIB
  85. CELECOXIB [Suspect]
     Active Substance: CELECOXIB
  86. ADALIMUMAB [Suspect]
     Active Substance: ADALIMUMAB
     Indication: Product used for unknown indication
     Route: 058
  87. ADALIMUMAB [Suspect]
     Active Substance: ADALIMUMAB
  88. ADALIMUMAB [Suspect]
     Active Substance: ADALIMUMAB
     Dosage: NOT PROVIDED
  89. SOFOSBUVIR [Suspect]
     Active Substance: SOFOSBUVIR
     Indication: Product used for unknown indication
     Dosage: NOT PROVIDED
  90. PRAVASTATIN [Suspect]
     Active Substance: PRAVASTATIN
     Indication: Product used for unknown indication
     Dosage: NOT PROVIDED
  91. DONEPEZIL HYDROCHLORIDE [Suspect]
     Active Substance: DONEPEZIL HYDROCHLORIDE
     Indication: Product used for unknown indication
     Route: 048
  92. CODEINE [Suspect]
     Active Substance: CODEINE
     Indication: Product used for unknown indication
  93. BISOPROLOL [Suspect]
     Active Substance: BISOPROLOL\BISOPROLOL FUMARATE
     Indication: Product used for unknown indication
  94. NITROGLYCERIN [Suspect]
     Active Substance: NITROGLYCERIN
     Indication: Product used for unknown indication
  95. NITROGLYCERIN [Suspect]
     Active Substance: NITROGLYCERIN
     Dosage: NOT PROVIDED
  96. TOCILIZUMAB [Suspect]
     Active Substance: TOCILIZUMAB
     Indication: Product used for unknown indication
     Dosage: NOT PROVIDED
  97. DILTIAZEM [Suspect]
     Active Substance: DILTIAZEM
     Indication: Product used for unknown indication
  98. BUPRENORPHINE [Suspect]
     Active Substance: BUPRENORPHINE
     Indication: Product used for unknown indication
     Route: 062
  99. GINKGO [Suspect]
     Active Substance: GINKGO
     Indication: Product used for unknown indication
  100. GINKGO [Suspect]
     Active Substance: GINKGO
  101. VENLAFAXINE [Suspect]
     Active Substance: VENLAFAXINE HYDROCHLORIDE
     Indication: Product used for unknown indication
     Dosage: NOT PROVIDED
  102. ESOMEPRAZOLE MAGNESIUM [Suspect]
     Active Substance: ESOMEPRAZOLE MAGNESIUM
     Indication: Product used for unknown indication
     Dosage: NOT PROVIDED
  103. NILOTINIB HYDROCHLORIDE MONOHYDRATE [Suspect]
     Active Substance: NILOTINIB HYDROCHLORIDE MONOHYDRATE
     Indication: Product used for unknown indication
     Dosage: NOT PROVIDED
  104. VERAPAMIL [Suspect]
     Active Substance: VERAPAMIL HYDROCHLORIDE
     Indication: Product used for unknown indication
  105. ANASTROZOLE [Suspect]
     Active Substance: ANASTROZOLE
     Indication: Product used for unknown indication
     Dosage: NOT PROVIDED
  106. DOCETAXEL [Suspect]
     Active Substance: DOCETAXEL\DOCETAXEL ANHYDROUS
     Indication: Product used for unknown indication
  107. DOCETAXEL [Suspect]
     Active Substance: DOCETAXEL\DOCETAXEL ANHYDROUS
     Dosage: NOT PROVIDED
  108. IBANDRONIC ACID [Suspect]
     Active Substance: IBANDRONIC ACID
     Indication: Product used for unknown indication
     Dosage: NOT PROVIDED
  109. MYCOPHENOLATE SODIUM [Suspect]
     Active Substance: MYCOPHENOLATE SODIUM
     Indication: Product used for unknown indication
     Dosage: NOT PROVIDED
  110. MYCOPHENOLATE SODIUM [Suspect]
     Active Substance: MYCOPHENOLATE SODIUM
  111. HYDROMORPHONE [Suspect]
     Active Substance: HYDROMORPHONE
     Indication: Product used for unknown indication
     Dosage: UNK UNK, UNKNOWN
  112. XYZAL [Suspect]
     Active Substance: LEVOCETIRIZINE DIHYDROCHLORIDE
     Indication: Product used for unknown indication
  113. XYZAL [Suspect]
     Active Substance: LEVOCETIRIZINE DIHYDROCHLORIDE
  114. POTASSIUM IODIDE [Suspect]
     Active Substance: POTASSIUM IODIDE
     Indication: Product used for unknown indication
     Dosage: NOT PROVIDED
  115. VENLAFAXINE HYDROCHLORIDE [Suspect]
     Active Substance: VENLAFAXINE HYDROCHLORIDE
     Indication: Product used for unknown indication
     Dosage: NOT PROVIDED
  116. NORFLOXACIN [Suspect]
     Active Substance: NORFLOXACIN
     Indication: Product used for unknown indication
     Dosage: NOT PROVIDED
  117. DOMPERIDONE MALEATE [Suspect]
     Active Substance: DOMPERIDONE MALEATE
     Indication: Product used for unknown indication
  118. IODINE [Suspect]
     Active Substance: IODINE
     Indication: Product used for unknown indication
     Dosage: NOT PROVIDED
  119. CALTRATE WITH VITAMIN D [Suspect]
     Active Substance: CALCIUM CARBONATE\CHOLECALCIFEROL
     Indication: Product used for unknown indication
  120. CALTRATE WITH VITAMIN D [Suspect]
     Active Substance: CALCIUM CARBONATE\CHOLECALCIFEROL
  121. CALTRATE WITH VITAMIN D [Suspect]
     Active Substance: CALCIUM CARBONATE\CHOLECALCIFEROL
  122. RABIES IMMUNE GLOBULIN (HUMAN) [Suspect]
     Active Substance: RABIES IMMUNE GLOBULIN (HUMAN)
     Indication: Product used for unknown indication
     Dosage: NOT PROVIDED
  123. PROZAC [Suspect]
     Active Substance: FLUOXETINE HYDROCHLORIDE
     Indication: Product used for unknown indication
     Dosage: NOT PROVIDED
  124. IODINE [Suspect]
     Active Substance: IODINE
     Indication: Product used for unknown indication
  125. NAUZELIN [Suspect]
     Active Substance: DOMPERIDONE
     Indication: Product used for unknown indication
     Dosage: NOT PROVIDED
  126. ZOMETA [Suspect]
     Active Substance: ZOLEDRONIC ACID
     Indication: Product used for unknown indication
  127. CELEBREX [Suspect]
     Active Substance: CELECOXIB
     Indication: Product used for unknown indication
  128. HERBALS [Suspect]
     Active Substance: HERBALS
     Indication: Product used for unknown indication
     Dosage: NOT PROVIDED

REACTIONS (47)
  - Drug interaction [Fatal]
  - Drug interaction [Fatal]
  - Coma [Fatal]
  - Haematemesis [Fatal]
  - Sepsis [Fatal]
  - Diplopia [Fatal]
  - Blood pressure increased [Fatal]
  - Blindness [Fatal]
  - Urinary tract disorder [Fatal]
  - Chills [Fatal]
  - Myalgia [Fatal]
  - Eye pain [Fatal]
  - Cardio-respiratory arrest [Fatal]
  - Photophobia [Fatal]
  - Tinnitus [Fatal]
  - Vision blurred [Fatal]
  - Haemorrhagic stroke [Fatal]
  - Haematuria [Fatal]
  - Amaurosis fugax [Fatal]
  - Ascites [Fatal]
  - Ocular discomfort [Fatal]
  - Head discomfort [Fatal]
  - Fall [Fatal]
  - Tachycardia [Fatal]
  - Malaise [Fatal]
  - Insomnia [Fatal]
  - Altered state of consciousness [Fatal]
  - Generalised oedema [Fatal]
  - Headache [Fatal]
  - Somnolence [Fatal]
  - Dyspnoea [Fatal]
  - Decreased appetite [Fatal]
  - Pyrexia [Fatal]
  - Arthralgia [Fatal]
  - Fatigue [Fatal]
  - Abdominal pain upper [Fatal]
  - Abdominal pain [Fatal]
  - Presyncope [Fatal]
  - Vomiting [Fatal]
  - Dizziness [Fatal]
  - Cough [Fatal]
  - Syncope [Fatal]
  - Asthenia [Fatal]
  - Diarrhoea [Fatal]
  - Pruritus [Fatal]
  - Nausea [Fatal]
  - Off label use [Unknown]
